FAERS Safety Report 4361240-3 (Version None)
Quarter: 2004Q2

REPORT INFORMATION
  Report Type: 
  Country: None (occurrence: None)
  Receive Date: 20040517
  Receipt Date: 20040503
  Transmission Date: 20050107
  Serious: Yes (Hospitalization)
  Sender: FDA-Public Use
  Company Number: 04P-062-0259580-02

PATIENT
  Age: 67 Year
  Sex: Male
  Weight: 63 kg

DRUGS (8)
  1. HUMIRA (ADALIMUMAB) (ADALIMUMAB) [Suspect]
     Indication: RHEUMATOID ARTHRITIS
     Dosage: 40 MG, 1 IN 2 WK, SUBCUTANEOUS
     Route: 058
     Dates: start: 20031125, end: 20031224
  2. METHOTREXATE SODIUM [Concomitant]
  3. IOLSAN [Concomitant]
  4. BUCINDOLOL HYDROCHLORIDE [Concomitant]
  5. SORTIS 20 [Concomitant]
  6. COLOXYL WITH DANTHRON [Concomitant]
  7. DILTIAZEM [Concomitant]
  8. PHENPROCOUMON [Concomitant]

REACTIONS (4)
  - INFECTION [None]
  - LEG AMPUTATION [None]
  - OSTEOMYELITIS [None]
  - PERIPHERAL VASCULAR DISORDER [None]
